FAERS Safety Report 6265775-8 (Version None)
Quarter: 2009Q3

REPORT INFORMATION
  Report Type: 
  Country: None (occurrence: None)
  Receive Date: 20090709
  Receipt Date: 20090709
  Transmission Date: 20100115
  Serious: Yes (Death)
  Sender: FDA-Public Use
  Company Number: None

PATIENT
  Sex: Male

DRUGS (1)
  1. CLOZAPINE [Suspect]
     Indication: SCHIZOPHRENIA
     Dosage: 100 MG Q AM AND 200 Q HS PO
     Route: 048
     Dates: start: 20080104, end: 20080119

REACTIONS (9)
  - ARTERIOSCLEROSIS CORONARY ARTERY [None]
  - CARDITIS [None]
  - CORONARY ARTERY STENOSIS [None]
  - FALL [None]
  - HALLUCINATION, AUDITORY [None]
  - INFECTION [None]
  - SINUS TACHYCARDIA [None]
  - SUDDEN DEATH [None]
  - TACHYPNOEA [None]
